FAERS Safety Report 13532542 (Version 1)
Quarter: 2017Q2

REPORT INFORMATION
  Report Type: Report from Study
  Country: JP (occurrence: JP)
  Receive Date: 20170510
  Receipt Date: 20170510
  Transmission Date: 20170830
  Serious: Yes (Other)
  Sender: FDA-Public Use
  Company Number: JP-DEPOMED, INC.-JP-2016DEP013122

PATIENT
  Age: 69 Year
  Sex: Male

DRUGS (6)
  1. TAPENTADOL HYDROCHLORIDE [Suspect]
     Active Substance: TAPENTADOL HYDROCHLORIDE
     Dosage: 200 MG, BID
     Route: 048
     Dates: start: 20160229, end: 20160308
  2. TRAMADOL HYDROCHLORIDE. [Concomitant]
     Active Substance: TRAMADOL HYDROCHLORIDE
     Indication: CANCER PAIN
     Dosage: UNK
     Dates: start: 20160125, end: 20160217
  3. FLURBIPROFEN AXETIL [Concomitant]
     Active Substance: FLURBIPROFEN AXETIL
     Indication: CANCER PAIN
     Dosage: UNK
     Dates: start: 20160125, end: 20160211
  4. TAPENTADOL HYDROCHLORIDE [Suspect]
     Active Substance: TAPENTADOL HYDROCHLORIDE
     Indication: CANCER PAIN
     Dosage: 100 MG, BID
     Route: 048
     Dates: start: 20160217, end: 20160221
  5. TRAMAL [Concomitant]
     Active Substance: TRAMADOL
     Indication: CANCER PAIN
     Dosage: UNK
     Dates: start: 20160216, end: 20160301
  6. TAPENTADOL HYDROCHLORIDE [Suspect]
     Active Substance: TAPENTADOL HYDROCHLORIDE
     Dosage: 100 MG, TID
     Route: 048
     Dates: start: 20160222, end: 20160228

REACTIONS (2)
  - Ileus [Recovering/Resolving]
  - Prescribed overdose [Unknown]

NARRATIVE: CASE EVENT DATE: 20160222
